FAERS Safety Report 4502319-2 (Version None)
Quarter: 2004Q4

REPORT INFORMATION
  Report Type: 
  Country: None (occurrence: None)
  Receive Date: 20041116
  Receipt Date: 20041014
  Transmission Date: 20050328
  Serious: No
  Sender: FDA-Public Use
  Company Number: NZ-GLAXOSMITHKLINE-B0349450A

PATIENT
  Age: 31 Year
  Sex: Female
  Weight: 99 kg

DRUGS (1)
  1. AROPAX [Suspect]
     Indication: AFFECTIVE DISORDER
     Dosage: 20MG PER DAY
     Route: 048
     Dates: start: 20020801

REACTIONS (3)
  - DRUG EXPOSURE DURING PREGNANCY [None]
  - INTRA-UTERINE DEATH [None]
  - PREGNANCY [None]
